FAERS Safety Report 21607796 (Version 1)
Quarter: 2022Q4

REPORT INFORMATION
  Report Type: Report from Study
  Country: CA (occurrence: CA)
  Receive Date: 20221117
  Receipt Date: 20221117
  Transmission Date: 20230113
  Serious: Yes (Hospitalization, Other)
  Sender: FDA-Public Use
  Company Number: CA-AMGEN-CANSL2022190958

PATIENT
  Age: 77 Year
  Sex: Female

DRUGS (1)
  1. AVSOLA [Suspect]
     Active Substance: INFLIXIMAB-AXXQ
     Indication: Crohn^s disease
     Dosage: 300 MILLIGRAM, QMO (Q4 WEEKS (64KG))
     Route: 065
     Dates: start: 20220413

REACTIONS (7)
  - Cerebrovascular accident [Unknown]
  - SARS-CoV-2 test positive [Unknown]
  - Incontinence [Unknown]
  - Product dose omission issue [Unknown]
  - Off label use [Unknown]
  - Fall [Unknown]
  - Visual impairment [Unknown]

NARRATIVE: CASE EVENT DATE: 20220101
